FAERS Safety Report 9161117 (Version 4)
Quarter: 2013Q3

REPORT INFORMATION
  Report Type: Spontaneous
  Country: US (occurrence: US)
  Receive Date: 20130313
  Receipt Date: 20130703
  Transmission Date: 20140515
  Serious: Yes (Other)
  Sender: FDA-Public Use
  Company Number: CHPA2013US003886

PATIENT
  Age: 58 Year
  Sex: Female

DRUGS (4)
  1. VOLTAREN GEL [Suspect]
     Indication: OSTEOARTHRITIS
     Dosage: UNK, QID
     Route: 061
  2. VOLTAREN GEL [Suspect]
     Indication: INSOMNIA
  3. HYDROCORTISONE [Concomitant]
     Dosage: UNK, UNK
  4. CLONAZEPAM [Concomitant]
     Dosage: UNK, UNK
     Route: 048

REACTIONS (5)
  - Cystitis [Recovered/Resolved]
  - Calculus bladder [Not Recovered/Not Resolved]
  - Blood urine present [Recovered/Resolved]
  - Therapeutic response unexpected [Unknown]
  - Off label use [Unknown]
